FAERS Safety Report 7028809-9 (Version None)
Quarter: 2010Q4

REPORT INFORMATION
  Report Type: 
  Country: None (occurrence: None)
  Receive Date: 20101005
  Receipt Date: 20100928
  Transmission Date: 20110411
  Serious: Yes (Death, Hospitalization)
  Sender: FDA-Public Use
  Company Number: US-BAYER-201034933NA

PATIENT
  Age: 32 Year
  Sex: Female
  Weight: 85 kg

DRUGS (5)
  1. CAMPATH [Suspect]
     Indication: ACUTE LYMPHOCYTIC LEUKAEMIA
     Dosage: TOTAL DAILY DOSE: 10 MG
     Route: 058
     Dates: start: 20100912, end: 20100912
  2. METHOTREXATE [Suspect]
     Indication: ACUTE LYMPHOCYTIC LEUKAEMIA
     Dosage: AS USED: 300 MG
     Route: 042
     Dates: start: 20100912, end: 20100912
  3. VINCRISTINE [Suspect]
     Indication: ACUTE LYMPHOCYTIC LEUKAEMIA
     Dosage: AS USED: 2 MG
     Dates: start: 20100913, end: 20100913
  4. ELSPAR [Suspect]
     Indication: ACUTE LYMPHOCYTIC LEUKAEMIA
     Dosage: AS USED: 500 IU/KG
     Route: 030
     Dates: start: 20100913, end: 20100913
  5. DEXAMETHASONE [Suspect]
     Indication: ACUTE LYMPHOCYTIC LEUKAEMIA
     Dosage: 6 MG/M2 DAYS 1-10, 120 MG TOTAL GIVEN FOR COURSE 2
     Route: 048
     Dates: start: 20100912, end: 20100921

REACTIONS (2)
  - MYOSITIS [None]
  - PNEUMONIA [None]
